FAERS Safety Report 7990754-X (Version None)
Quarter: 2011Q4

REPORT INFORMATION
  Report Type: 
  Country: None (occurrence: None)
  Receive Date: 20111219
  Receipt Date: 20111219
  Transmission Date: 20120403
  Serious: Yes (Other)
  Sender: FDA-Public Use
  Company Number: None

PATIENT
  Age: 35 Year
  Sex: Male
  Weight: 79.378 kg

DRUGS (1)
  1. STRATTERA [Suspect]
     Indication: ATTENTION DEFICIT/HYPERACTIVITY DISORDER
     Dosage: 40MG ONCE DAILY
     Dates: start: 20111210, end: 20111217

REACTIONS (6)
  - BURNING SENSATION [None]
  - EJACULATION DISORDER [None]
  - ABDOMINAL PAIN LOWER [None]
  - DYSURIA [None]
  - RED BLOOD CELLS SEMEN POSITIVE [None]
  - SEMENURIA [None]
